FAERS Safety Report 17514668 (Version 3)
Quarter: 2023Q1

REPORT INFORMATION
  Report Type: Other
  Country: GB (occurrence: None)
  Receive Date: 20200309
  Receipt Date: 20230209
  Transmission Date: 20230417
  Serious: Yes (Hospitalization, Other)
  Sender: FDA-Public Use
  Company Number: GB-ROCHE-2264586

PATIENT
  Age: 50 Year
  Sex: Female

DRUGS (2)
  1. OCREVUS [Suspect]
     Active Substance: OCRELIZUMAB
     Indication: Relapsing-remitting multiple sclerosis
     Route: 041
  2. OCREVUS [Suspect]
     Active Substance: OCRELIZUMAB
     Indication: Primary progressive multiple sclerosis
     Dosage: CYCLE 3
     Route: 041

REACTIONS (17)
  - Tachycardia [Unknown]
  - Palpitations [Unknown]
  - Gastrointestinal infection [Unknown]
  - Blood pressure increased [Recovered/Resolved]
  - Heart rate increased [Recovered/Resolved]
  - Nausea [Unknown]
  - Ear pruritus [Recovered/Resolved]
  - Headache [Unknown]
  - Malaise [Unknown]
  - Pruritus [Unknown]
  - Hyperhidrosis [Unknown]
  - Depression [Unknown]
  - Skin discolouration [Unknown]
  - Fatigue [Unknown]
  - Feeling hot [Unknown]
  - Throat irritation [Recovered/Resolved]
  - Heart rate increased [Not Recovered/Not Resolved]

NARRATIVE: CASE EVENT DATE: 20230202
